FAERS Safety Report 7468542-2 (Version None)
Quarter: 2011Q2

REPORT INFORMATION
  Report Type: 
  Country: None (occurrence: None)
  Receive Date: 20110509
  Receipt Date: 20110427
  Transmission Date: 20111010
  Serious: Yes (Other)
  Sender: FDA-Public Use
  Company Number: US-BAYER-2011-018282

PATIENT
  Age: 78 Year
  Sex: Male
  Weight: 78.005 kg

DRUGS (4)
  1. TRAVATAN [Concomitant]
     Dosage: 1 DROP IN EACH EYE
  2. AMLOPIN [Concomitant]
     Dosage: 1 TABLET DAILY
     Route: 048
  3. CIPRO [Suspect]
     Indication: PHARYNGITIS
  4. BRIMONIDINE TARTRATE [Concomitant]
     Dosage: 1 DROP IN EACH EYE

REACTIONS (2)
  - ABASIA [None]
  - PAIN IN EXTREMITY [None]
